FAERS Safety Report 16575739 (Version 1)
Quarter: 2019Q3

REPORT INFORMATION
  Report Type: Spontaneous
  Country: US (occurrence: US)
  Receive Date: 20190602
  Receipt Date: 20190602
  Transmission Date: 20191004
  Serious: No
  Sender: FDA-Public Use
  Company Number: None

PATIENT
  Age: 55 Year
  Sex: Female

DRUGS (1)
  1. TETRABENAZINE TAB 12.5MG [Suspect]
     Active Substance: TETRABENAZINE

REACTIONS (1)
  - Depression [None]

NARRATIVE: CASE EVENT DATE: 20190602
